FAERS Safety Report 12536013 (Version 1)
Quarter: 2016Q3

REPORT INFORMATION
  Report Type: Spontaneous
  Country: US (occurrence: None)
  Receive Date: 20160706
  Receipt Date: 20160706
  Transmission Date: 20161109
  Serious: Yes (Other)
  Sender: FDA-Public Use
  Company Number: None

PATIENT
  Age: 47 Year
  Sex: Female
  Weight: 77.11 kg

DRUGS (1)
  1. MUPIROCIN CREAM USP 2% 30G [Suspect]
     Active Substance: MUPIROCIN
     Indication: SKIN INFECTION
     Route: 061
     Dates: start: 20160107, end: 20160111

REACTIONS (7)
  - Condition aggravated [None]
  - Application site pain [None]
  - Wound secretion [None]
  - Wound [None]
  - Pain [None]
  - Erythema [None]
  - Product physical consistency issue [None]

NARRATIVE: CASE EVENT DATE: 20160107
